FAERS Safety Report 15559580 (Version 2)
Quarter: 2018Q4

REPORT INFORMATION
  Report Type: Report from Study
  Country: ES (occurrence: ES)
  Receive Date: 20181029
  Receipt Date: 20181105
  Transmission Date: 20190205
  Serious: Yes (Other)
  Sender: FDA-Public Use
  Company Number: ES-ROCHE-2202937

PATIENT

DRUGS (10)
  1. ELBASVIR/GRAZOPREVIR [Suspect]
     Active Substance: ELBASVIR\GRAZOPREVIR
     Indication: CHRONIC HEPATITIS C
     Dosage: ELBASVIR WAS PRESCRIBED AT 50 MG ADMINISTERED ORALLY ONCE DAILY IN CO-FORMULATION WITH GRAZOPREVIR 1
     Route: 048
  2. OMBITASVIR [Suspect]
     Active Substance: OMBITASVIR
     Indication: CHRONIC HEPATITIS C
     Route: 048
  3. PARITAPREVIR [Suspect]
     Active Substance: PARITAPREVIR
     Indication: CHRONIC HEPATITIS C
     Route: 048
  4. SIMEPREVIR [Suspect]
     Active Substance: SIMEPREVIR
     Indication: CHRONIC HEPATITIS C
     Route: 048
  5. RITONAVIR. [Suspect]
     Active Substance: RITONAVIR
     Indication: CHRONIC HEPATITIS C
     Route: 048
  6. SOFOSBUVIR [Suspect]
     Active Substance: SOFOSBUVIR
     Indication: CHRONIC HEPATITIS C
     Route: 048
  7. RIBAVIRIN. [Suspect]
     Active Substance: RIBAVIRIN
     Indication: CHRONIC HEPATITIS C
     Route: 048
  8. DACLATASVIR. [Suspect]
     Active Substance: DACLATASVIR
     Indication: CHRONIC HEPATITIS C
     Route: 048
  9. LEDIPASVIR/SOFOSBUVIR [Suspect]
     Active Substance: LEDIPASVIR\SOFOSBUVIR
     Indication: CHRONIC HEPATITIS C
     Dosage: LEDIPASVIR WAS PRESCRIBED AT 90 MG ADMINISTERED ORALLY ONCE DAILY IN CO-FORMULATION WITH  SOFOSBUVIR
     Route: 048
  10. DASABUVIR [Suspect]
     Active Substance: DASABUVIR
     Indication: CHRONIC HEPATITIS C
     Route: 048

REACTIONS (5)
  - Insomnia [Unknown]
  - Headache [Unknown]
  - Anaemia [Unknown]
  - Renal impairment [Unknown]
  - Fatigue [Unknown]
